FAERS Safety Report 11039775 (Version 1)
Quarter: 2015Q2

REPORT INFORMATION
  Report Type: Spontaneous
  Country: US (occurrence: US)
  Receive Date: 20150416
  Receipt Date: 20150416
  Transmission Date: 20150821
  Serious: No
  Sender: FDA-Public Use
  Company Number: US-ENDO PHARMACEUTICALS INC.-FURO20140004

PATIENT
  Sex: Female

DRUGS (4)
  1. FUROSEMIDE TABLETS [Suspect]
     Active Substance: FUROSEMIDE
     Route: 048
  2. FUROSEMIDE TABLETS [Suspect]
     Active Substance: FUROSEMIDE
     Route: 048
  3. FUROSEMIDE TABLETS [Suspect]
     Active Substance: FUROSEMIDE
     Route: 048
     Dates: start: 201403
  4. FUROSEMIDE TABLETS [Suspect]
     Active Substance: FUROSEMIDE
     Indication: LOCAL SWELLING
     Route: 048

REACTIONS (4)
  - Drug ineffective [Not Recovered/Not Resolved]
  - Drug dose omission [Recovered/Resolved]
  - Urine output decreased [Not Recovered/Not Resolved]
  - Acne [Not Recovered/Not Resolved]

NARRATIVE: CASE EVENT DATE: 20140405
